FAERS Safety Report 7121583-7 (Version None)
Quarter: 2010Q4

REPORT INFORMATION
  Report Type: 
  Country: None (occurrence: None)
  Receive Date: 20101124
  Receipt Date: 20101112
  Transmission Date: 20110411
  Serious: Yes (Other)
  Sender: FDA-Public Use
  Company Number: US-ELI_LILLY_AND_COMPANY-US201008006388

PATIENT
  Sex: Female

DRUGS (4)
  1. EVISTA [Suspect]
     Indication: PROPHYLAXIS
     Dosage: 60 MG, DAILY (1/D)
  2. FORTEO [Suspect]
     Indication: OSTEOPOROSIS
     Dosage: 20 UG, DAILY (1/D)
  3. SYNTHROID [Concomitant]
  4. ANTIHYPERTENSIVES [Concomitant]
     Indication: BLOOD PRESSURE INCREASED

REACTIONS (6)
  - ARTHROPATHY [None]
  - BLOOD PRESSURE INCREASED [None]
  - HIP FRACTURE [None]
  - NECK INJURY [None]
  - RIB FRACTURE [None]
  - TRANSFUSION [None]
